FAERS Safety Report 17925022 (Version 5)
Quarter: 2020Q3

REPORT INFORMATION
  Report Type: Spontaneous
  Country: CN (occurrence: CN)
  Receive Date: 20200622
  Receipt Date: 20200713
  Transmission Date: 20201103
  Serious: Yes (Other)
  Sender: FDA-Public Use
  Company Number: CN-JNJFOC-20200623654

PATIENT
  Age: 3 Year
  Sex: Female

DRUGS (1)
  1. CHILDRENS MOTRIN [Suspect]
     Active Substance: IBUPROFEN
     Indication: PYREXIA
     Dosage: 4ML PER TIME ONLY ONCE
     Route: 048
     Dates: start: 20200531, end: 20200531

REACTIONS (8)
  - Listless [Recovered/Resolved]
  - Vomiting [Recovered/Resolved]
  - Eating disorder [Recovered/Resolved]
  - Asthenia [Recovered/Resolved]
  - Abdominal discomfort [Recovered/Resolved]
  - Decreased appetite [Recovered/Resolved]
  - Hypersensitivity [Recovered/Resolved]
  - Discomfort [Recovered/Resolved]

NARRATIVE: CASE EVENT DATE: 2000
